FAERS Safety Report 22612892 (Version 2)
Quarter: 2024Q4

REPORT INFORMATION
  Report Type: Report from Study
  Country: DE (occurrence: DE)
  Receive Date: 20230617
  Receipt Date: 20241021
  Transmission Date: 20250114
  Serious: Yes (Congenital Anomaly)
  Sender: UCB
  Company Number: DE-UCBSA-2023030238

PATIENT

DRUGS (1)
  1. LACOSAMIDE [Suspect]
     Active Substance: LACOSAMIDE
     Indication: Product used for unknown indication
     Dosage: UNK
     Route: 064

REACTIONS (2)
  - Haemangioma [Not Recovered/Not Resolved]
  - Maternal exposure during pregnancy [Unknown]
